FAERS Safety Report 5199965-2 (Version None)
Quarter: 2007Q1

REPORT INFORMATION
  Report Type: 
  Country: None (occurrence: None)
  Receive Date: 20070103
  Receipt Date: 20061219
  Transmission Date: 20070707
  Serious: Yes (Other)
  Sender: FDA-Public Use
  Company Number: 06H-163-0311563-00

PATIENT
  Age: 55 Year
  Sex: Female

DRUGS (12)
  1. EPINEPHRINE [Suspect]
     Indication: RESPIRATORY DISTRESS
     Dosage: 100 MCG, INTRAVENOUS
     Route: 042
  2. PROPOFOL [Concomitant]
  3. LIDOCAINE [Concomitant]
  4. SUCCINYLCHOLINE CHLORIDE [Concomitant]
  5. NITROUS OXIDE (NITROUS OXIDE) [Concomitant]
  6. SEVOFLURANE-OXYGEN (SEVOFLURANE) [Concomitant]
  7. FENTANYL [Concomitant]
  8. PROMETHAZINE [Concomitant]
  9. ONDANSETRON HYDROCHLORIDE [Concomitant]
  10. SCOPOLAMINE (HYOSCINE) [Concomitant]
  11. DIPHENHYDRAMINE HCL [Concomitant]
  12. HYDROCORTISONE HEMISUCCINATED (HYDROCORTISONE) [Concomitant]

REACTIONS (5)
  - ARTERIOSPASM CORONARY [None]
  - ELECTROCARDIOGRAM ST SEGMENT ELEVATION [None]
  - HYPOTENSION [None]
  - MYOCARDIAL ISCHAEMIA [None]
  - VENTRICULAR TACHYCARDIA [None]
